FAERS Safety Report 5428398-6 (Version None)
Quarter: 2007Q3

REPORT INFORMATION
  Report Type: 
  Country: None (occurrence: None)
  Receive Date: 20070823
  Receipt Date: 20070801
  Transmission Date: 20080115
  Serious: Yes (Hospitalization)
  Sender: FDA-Public Use
  Company Number: 2007US001796

PATIENT
  Sex: Female

DRUGS (2)
  1. VESICARE [Suspect]
     Indication: INCONTINENCE
     Dosage: 5MG, UID/QD; ORAL, 10 MG, UID/QD; ORAL
     Route: 048
     Dates: start: 20050101, end: 20050101
  2. VESICARE [Suspect]
     Indication: INCONTINENCE
     Dosage: 5MG, UID/QD; ORAL, 10 MG, UID/QD; ORAL
     Route: 048
     Dates: start: 20050516, end: 20061201

REACTIONS (3)
  - DRY MOUTH [None]
  - PANCREATITIS [None]
  - THIRST [None]
